FAERS Safety Report 7009528-1 (Version None)
Quarter: 2010Q3

REPORT INFORMATION
  Report Type: 
  Country: None (occurrence: None)
  Receive Date: 20100923
  Receipt Date: 20100916
  Transmission Date: 20110219
  Serious: Yes (Hospitalization)
  Sender: FDA-Public Use
  Company Number: PHHY2010JP60151

PATIENT
  Age: 59 Year
  Sex: Male

DRUGS (1)
  1. VOLTAREN [Suspect]
     Indication: PAIN
     Dosage: 300 MG IN 1 DAY
     Route: 054
     Dates: start: 20100903, end: 20100906

REACTIONS (2)
  - OVERDOSE [None]
  - RENAL DISORDER [None]
